FAERS Safety Report 25183722 (Version 1)
Quarter: 2025Q2

REPORT INFORMATION
  Report Type: Spontaneous
  Country: US (occurrence: US)
  Receive Date: 20250410
  Receipt Date: 20250410
  Transmission Date: 20250717
  Serious: No
  Sender: HIKMA
  Company Number: US-HIKMA PHARMACEUTICALS USA INC.-US-H14001-25-02112

PATIENT
  Age: 20 Year
  Sex: Female

DRUGS (3)
  1. DUPIXENT [Suspect]
     Active Substance: DUPILUMAB
     Indication: Eczema
     Dosage: 300 MILLIGRAM, QOW
     Route: 058
  2. DUPIXENT [Suspect]
     Active Substance: DUPILUMAB
     Indication: Dermatitis atopic
  3. KETAMINE [Suspect]
     Active Substance: KETAMINE
     Indication: Wisdom teeth removal
     Route: 065
     Dates: start: 20231220

REACTIONS (5)
  - Panic attack [Recovered/Resolved]
  - Vomiting [Unknown]
  - Injection site pain [Recovered/Resolved]
  - Injection site swelling [Unknown]
  - Drug ineffective [Unknown]

NARRATIVE: CASE EVENT DATE: 20231220
